FAERS Safety Report 5829012 (Version 2)
Quarter: 2013Q1

REPORT INFORMATION
  Report Type: Spontaneous
  Country: GB (occurrence: None)
  Receive Date: 20050620
  Receipt Date: 20130116
  Transmission Date: 20140127
  Serious: Yes (Life-Threatening, Hospitalization)
  Sender: FDA-Public Use
  Company Number: 2005US-00557

PATIENT
  Age: 67 Year
  Sex: Female

DRUGS (4)
  1. ENALAPRIL MALEATE [Suspect]
     Indication: ANGIOPATHY
  2. BISOPROLOL [Concomitant]
  3. BUMETANIDE [Concomitant]
  4. ISOSORBIDE MONONITRATE [Concomitant]

REACTIONS (7)
  - Hyperkalaemia [None]
  - Diarrhoea [None]
  - Loss of consciousness [None]
  - Blood urea increased [None]
  - Dialysis [None]
  - Blood bicarbonate decreased [None]
  - Renal failure acute [None]
